FAERS Safety Report 10723946 (Version 3)
Quarter: 2015Q1

REPORT INFORMATION
  Report Type: Report from Study
  Country: AR (occurrence: AR)
  Receive Date: 20150120
  Receipt Date: 20150208
  Transmission Date: 20150721
  Serious: Yes (Hospitalization)
  Sender: FDA-Public Use
  Company Number: PHHY2015AR002676

PATIENT
  Age: 69 Year
  Sex: Male

DRUGS (2)
  1. CLOZARIL [Suspect]
     Active Substance: CLOZAPINE
     Indication: CATATONIA
     Dosage: 500 MG, UNK
     Route: 048
  2. CLOZARIL [Suspect]
     Active Substance: CLOZAPINE
     Dosage: UNK
     Route: 065
     Dates: start: 20150107

REACTIONS (4)
  - Anaemia [Unknown]
  - Product use issue [Unknown]
  - Aspiration [Recovered/Resolved]
  - Catatonia [Unknown]

NARRATIVE: CASE EVENT DATE: 201410
